FAERS Safety Report 5758859-1 (Version None)
Quarter: 2008Q2

REPORT INFORMATION
  Report Type: 
  Country: None (occurrence: None)
  Receive Date: 20080603
  Receipt Date: 20080603
  Transmission Date: 20081010
  Serious: Yes (Hospitalization)
  Sender: FDA-Public Use
  Company Number: None

PATIENT
  Age: 59 Year
  Sex: Female

DRUGS (2)
  1. CIPROFLOXACIN [Suspect]
     Indication: FOLLICULITIS
     Dosage: 500 MG BID PO
     Route: 048
     Dates: start: 20070816, end: 20070826
  2. AMOXICILLIN + CLAVULANATE POTASSIUM [Suspect]
     Indication: FOLLICULITIS
     Dosage: 875/125 MG BID PO
     Route: 048
     Dates: start: 20070809, end: 20070815

REACTIONS (1)
  - CLOSTRIDIUM DIFFICILE COLITIS [None]
